FAERS Safety Report 7645019-2 (Version None)
Quarter: 2011Q3

REPORT INFORMATION
  Report Type: 
  Country: None (occurrence: None)
  Receive Date: 20110729
  Receipt Date: 20110726
  Transmission Date: 20111222
  Serious: Yes (Congenital Anomaly, Other)
  Sender: FDA-Public Use
  Company Number: GB-GLAXOSMITHKLINE-B0685678A

PATIENT
  Sex: Male
  Weight: 2.96 kg

DRUGS (2)
  1. TOPAMAX [Suspect]
     Indication: EPILEPSY
     Dosage: 350MG PER DAY
     Route: 064
  2. LAMOTRIGINE [Suspect]
     Indication: EPILEPSY
     Dosage: 50MG PER DAY
     Route: 064

REACTIONS (3)
  - CONGENITAL NOSE MALFORMATION [None]
  - TALIPES [None]
  - PLAGIOCEPHALY [None]
